FAERS Safety Report 11535796 (Version 1)
Quarter: 2015Q3

REPORT INFORMATION
  Report Type: Spontaneous
  Country: US (occurrence: None)
  Receive Date: 20150921
  Receipt Date: 20150921
  Transmission Date: 20151125
  Serious: No
  Sender: FDA-Public Use
  Company Number: None

PATIENT
  Age: 64 Year
  Sex: Female
  Weight: 54.43 kg

DRUGS (4)
  1. HYDROCODONE + ACETAMINOPHEN 10MG/325MG WARNER CHILCOTT COMPANY LLC [Suspect]
     Active Substance: ACETAMINOPHEN\HYDROCODONE
     Indication: PAIN
     Dosage: 1/2-1 QID PO
     Route: 048
     Dates: start: 20150903, end: 20150911
  2. ARMOUR THYROID [Concomitant]
     Active Substance: THYROID, PORCINE\THYROID, UNSPECIFIED
  3. LISINIOPRIL [Concomitant]
     Active Substance: LISINOPRIL
  4. SKELAXIN [Concomitant]
     Active Substance: METAXALONE

REACTIONS (1)
  - Drug ineffective [None]

NARRATIVE: CASE EVENT DATE: 20150903
